FAERS Safety Report 10668691 (Version 2)
Quarter: 2015Q1

REPORT INFORMATION
  Report Type: Spontaneous
  Country: BR (occurrence: BR)
  Receive Date: 20141222
  Receipt Date: 20150106
  Transmission Date: 20150720
  Serious: Yes (Hospitalization)
  Sender: FDA-Public Use
  Company Number: PHHY2014BR166798

PATIENT
  Age: 67 Year
  Sex: Female

DRUGS (4)
  1. ARTRODAR [Concomitant]
     Active Substance: DIACEREIN
     Indication: OSTEOARTHRITIS
     Dosage: 1 DF, QD
     Route: 048
     Dates: start: 2014
  2. PURAN [Concomitant]
     Active Substance: LEVOTHYROXINE SODIUM
     Indication: HYPOTHYROIDISM
     Dosage: 1 DF, QD
     Route: 048
  3. CRESTOR [Concomitant]
     Active Substance: ROSUVASTATIN CALCIUM
     Indication: BLOOD CHOLESTEROL INCREASED
     Dosage: 1 DF, QD
     Route: 048
  4. ACLASTA [Suspect]
     Active Substance: ZOLEDRONIC ACID
     Indication: OSTEOPENIA
     Dosage: 1 DF (5MG/100ML), EVERY YEAR
     Route: 042
     Dates: start: 20141218

REACTIONS (7)
  - Spinal pain [Recovered/Resolved]
  - Nausea [Recovered/Resolved]
  - Arthritis [Unknown]
  - Gait disturbance [Recovered/Resolved]
  - Bone pain [Unknown]
  - Vomiting [Recovered/Resolved]
  - Pain [Recovered/Resolved]

NARRATIVE: CASE EVENT DATE: 20141218
